FAERS Safety Report 5564035-8 (Version None)
Quarter: 2007Q4

REPORT INFORMATION
  Report Type: 
  Country: None (occurrence: None)
  Receive Date: 20071217
  Receipt Date: 20071121
  Transmission Date: 20080405
  Serious: No
  Sender: FDA-Public Use
  Company Number: US-BOEHRINGER INGELHEIM PHARMACEUTICALS, INC.-2007-BP-24990BP

PATIENT
  Sex: Female

DRUGS (1)
  1. CATAPRES [Suspect]

REACTIONS (1)
  - ACCIDENTAL DRUG INTAKE BY CHILD [None]
